FAERS Safety Report 8160463-5 (Version None)
Quarter: 2012Q1

REPORT INFORMATION
  Report Type: 
  Country: None (occurrence: None)
  Receive Date: 20120223
  Receipt Date: 20120216
  Transmission Date: 20120608
  Serious: No
  Sender: FDA-Public Use
  Company Number: US-BAYER-2012-016631

PATIENT
  Age: 92 Year
  Sex: Female
  Weight: 54 kg

DRUGS (6)
  1. VITAMIN A [Concomitant]
  2. VITAMIN D [Concomitant]
  3. ALEVE (CAPLET) [Suspect]
     Indication: ANALGESIC THERAPY
     Dosage: 1 TABLET TWICE DAILY - 50 COUNT
     Route: 048
     Dates: start: 20111101
  4. VITAMIN E [Suspect]
  5. ASCORBIC ACID [Concomitant]
  6. VITAMIN B COMPLEX CAP [Concomitant]

REACTIONS (1)
  - NAUSEA [None]
